FAERS Safety Report 13085441 (Version 1)
Quarter: 2017Q1

REPORT INFORMATION
  Report Type: Spontaneous
  Country: US (occurrence: US)
  Receive Date: 20170104
  Receipt Date: 20170104
  Transmission Date: 20170428
  Serious: No
  Sender: FDA-Public Use
  Company Number: US-PFIZER INC-2016594739

PATIENT
  Age: 82 Year
  Sex: Female

DRUGS (2)
  1. CLARITIN [Concomitant]
     Active Substance: LORATADINE
     Indication: HYPERSENSITIVITY
     Dosage: 10 MG, UNK
  2. ADVIL [Suspect]
     Active Substance: IBUPROFEN
     Dosage: 2 DF, 1X/DAY (TOOK 2 THIS MORNING)

REACTIONS (2)
  - Logorrhoea [Unknown]
  - Energy increased [Unknown]
